FAERS Safety Report 24301821 (Version 1)
Quarter: 2024Q3

REPORT INFORMATION
  Report Type: Spontaneous
  Country: DE (occurrence: DE)
  Receive Date: 20240910
  Receipt Date: 20240910
  Transmission Date: 20241017
  Serious: Yes (Death, Hospitalization, Other)
  Sender: PURACAP
  Company Number: DE-PURACAP-DE-2024EPCLIT01087

PATIENT
  Age: 14 Year
  Sex: Female

DRUGS (1)
  1. AMLODIPINE [Suspect]
     Active Substance: AMLODIPINE BESYLATE
     Indication: Product used for unknown indication
     Route: 065

REACTIONS (3)
  - Multiple organ dysfunction syndrome [Fatal]
  - Toxicity to various agents [Fatal]
  - Intentional overdose [Unknown]
